FAERS Safety Report 9227090 (Version 2)
Quarter: 2013Q4

REPORT INFORMATION
  Report Type: Spontaneous
  Country: GB (occurrence: GB)
  Receive Date: 20130412
  Receipt Date: 20131015
  Transmission Date: 20140711
  Serious: Yes (Disabling, Other)
  Sender: FDA-Public Use
  Company Number: GB-ELI_LILLY_AND_COMPANY-GB201304000427

PATIENT
  Age: 40 Year
  Sex: Female
  Weight: 64 kg

DRUGS (5)
  1. DULOXETINE HYDROCHLORIDE [Suspect]
     Indication: FIBROMYALGIA
     Dosage: 30 MG, QD
     Route: 065
     Dates: start: 20121122
  2. DULOXETINE HYDROCHLORIDE [Suspect]
     Dosage: 120 MG, QD
     Route: 065
  3. DIAZEPAM [Concomitant]
     Indication: PRODUCT USED FOR UNKNOWN INDICATION
     Dosage: UNK
     Dates: start: 20121122
  4. PARACETAMOL [Concomitant]
     Indication: PRODUCT USED FOR UNKNOWN INDICATION
     Dosage: UNK
     Dates: start: 20130107, end: 20130201
  5. VITAMIN A [Concomitant]
     Indication: PRODUCT USED FOR UNKNOWN INDICATION
     Dosage: UNK
     Dates: start: 20121121, end: 20121221

REACTIONS (19)
  - Self-injurious ideation [Recovering/Resolving]
  - Dyspnoea [Recovering/Resolving]
  - Disturbance in attention [Recovering/Resolving]
  - Confusional state [Recovering/Resolving]
  - Head titubation [Recovering/Resolving]
  - Insomnia [Recovering/Resolving]
  - Loss of libido [Recovering/Resolving]
  - Apathy [Recovering/Resolving]
  - Mood swings [Recovering/Resolving]
  - Nausea [Recovering/Resolving]
  - Abdominal pain upper [Recovering/Resolving]
  - Paraesthesia [Recovering/Resolving]
  - Restless legs syndrome [Recovering/Resolving]
  - Sensory disturbance [Recovering/Resolving]
  - Hyperhidrosis [Recovering/Resolving]
  - Aggression [Recovering/Resolving]
  - Urinary tract disorder [Recovering/Resolving]
  - Drug withdrawal headache [Recovering/Resolving]
  - Drug withdrawal syndrome [Recovering/Resolving]
